FAERS Safety Report 5512523-2 (Version None)
Quarter: 2007Q4

REPORT INFORMATION
  Report Type: 
  Country: None (occurrence: None)
  Receive Date: 20071112
  Receipt Date: 20070611
  Transmission Date: 20080405
  Serious: No
  Sender: FDA-Public Use
  Company Number: A0655057A

PATIENT
  Sex: Male

DRUGS (11)
  1. AVANDAMET [Suspect]
     Route: 048
  2. AVANDIA [Suspect]
     Dosage: 4MG PER DAY
     Route: 048
  3. GLIPIZIDE [Concomitant]
  4. NORVASC [Concomitant]
  5. DIGOTAB [Concomitant]
  6. ISOSORBIDE DINITRATE [Concomitant]
  7. TOPROL-XL [Concomitant]
  8. WARFARIN SODIUM [Concomitant]
  9. VYTORIN [Concomitant]
  10. FINASTERIDE [Concomitant]
  11. PROSTATE MEDICATION [Concomitant]

REACTIONS (3)
  - DIARRHOEA [None]
  - OEDEMA PERIPHERAL [None]
  - VISION BLURRED [None]
